FAERS Safety Report 6097668-3 (Version None)
Quarter: 2009Q1

REPORT INFORMATION
  Report Type: 
  Country: None (occurrence: None)
  Receive Date: 20090219
  Receipt Date: 20081030
  Transmission Date: 20090719
  Serious: No
  Sender: FDA-Public Use
  Company Number: WAES 0810USA05355

PATIENT
  Age: 67 Year
  Sex: Male
  Weight: 79.8331 kg

DRUGS (6)
  1. JANUVIA [Suspect]
     Indication: DIABETES MELLITUS
     Dosage: 100 MG/DAILY/PO
     Route: 048
     Dates: start: 20061224, end: 20070115
  2. DIOVAN HCT [Concomitant]
  3. GLUCOPHAGE [Concomitant]
  4. LOPID [Concomitant]
  5. ZANTAC [Concomitant]
  6. ASPIRIN [Concomitant]

REACTIONS (5)
  - FATIGUE [None]
  - HEADACHE [None]
  - NAUSEA [None]
  - TREMOR [None]
  - VOMITING [None]
